FAERS Safety Report 19944759 (Version 1)
Quarter: 2021Q4

REPORT INFORMATION
  Report Type: Spontaneous
  Country: US (occurrence: US)
  Receive Date: 20211011
  Receipt Date: 20211011
  Transmission Date: 20220303
  Serious: No
  Sender: FDA-Public Use
  Company Number: US-BIOMARINAP-US-2021-138846

PATIENT
  Age: 10 Year
  Sex: Male

DRUGS (2)
  1. KUVAN [Suspect]
     Active Substance: SAPROPTERIN DIHYDROCHLORIDE
     Indication: Phenylketonuria
     Dosage: 600 MILLIGRAM, QD
     Route: 048
     Dates: start: 20180125
  2. MEDICAL FOOD [Concomitant]
     Active Substance: MEDICAL FOOD
     Indication: Product used for unknown indication
     Dosage: UNK
     Route: 065

REACTIONS (1)
  - Illness [Recovered/Resolved]
